FAERS Safety Report 7721791-8 (Version None)
Quarter: 2011Q3

REPORT INFORMATION
  Report Type: 
  Country: None (occurrence: None)
  Receive Date: 20110831
  Receipt Date: 20110829
  Transmission Date: 20111222
  Serious: Yes (Hospitalization)
  Sender: FDA-Public Use
  Company Number: AU-B.I. PHARMACEUTICALS,INC./RIDGEFIELD-2011-AU-00981AU

PATIENT
  Sex: Male
  Weight: 74 kg

DRUGS (9)
  1. CANDESARTAN CILEXETIL [Concomitant]
     Dosage: 32 MG
     Dates: start: 20080101
  2. METFORMIN HCL [Concomitant]
     Dosage: 1000 MG
     Dates: start: 20080101
  3. SOTALOL HCL [Concomitant]
     Dosage: 80 MG
     Dates: start: 19900101
  4. PRADAXA [Suspect]
     Indication: ATRIAL FIBRILLATION
     Dosage: 220 MG
     Dates: start: 20110628
  5. CADUET [Concomitant]
     Dosage: 10/40 MG DAILY
     Dates: start: 20070101
  6. DIAMICRON MR [Concomitant]
     Dosage: 120 MG
     Dates: start: 20070101
  7. PANADOL OSTEO [Concomitant]
  8. FUROSEMIDE [Concomitant]
     Dosage: 40 MG
  9. DIGOXIN [Concomitant]
     Dosage: 250 MCG

REACTIONS (3)
  - SPLENIC INFARCTION [None]
  - ABDOMINAL PAIN UPPER [None]
  - SPLENIC EMBOLISM [None]
